FAERS Safety Report 18678969 (Version 1)
Quarter: 2020Q4

REPORT INFORMATION
  Report Type: Spontaneous
  Country: US (occurrence: US)
  Receive Date: 20201230
  Receipt Date: 20201230
  Transmission Date: 20210114
  Serious: No
  Sender: FDA-Public Use
  Company Number: US-APOTEX-2020AP024243

PATIENT
  Age: 61 Year
  Sex: Female
  Weight: 67.13 kg

DRUGS (3)
  1. DESMOPRESSIN ACETATE. [Suspect]
     Active Substance: DESMOPRESSIN ACETATE
     Indication: BLOOD GROWTH HORMONE
     Dosage: 0.5 DOSAGE FORM, Q.H.S.
     Route: 048
  2. FLUTICASONE PROPIONATE NASAL SPRAY [Suspect]
     Active Substance: FLUTICASONE PROPIONATE
     Indication: SEASONAL ALLERGY
     Dosage: 1 SPRAY IN EACH NOSTRIL DURING MOUNTAIN CEDAR AND RAG WEED SEASON
     Route: 045
  3. PREMARIN [Concomitant]
     Active Substance: ESTROGENS, CONJUGATED
     Indication: VULVOVAGINAL DRYNESS
     Dosage: SIZE OF PENCIL ERASER TWICE A WEEK AT NIGHT VAGINALLY
     Route: 067
     Dates: start: 2007

REACTIONS (2)
  - Pituitary tumour benign [Unknown]
  - Nausea [Recovered/Resolved]

NARRATIVE: CASE EVENT DATE: 202009
